FAERS Safety Report 8860634 (Version 1)
Quarter: 2012Q4

REPORT INFORMATION
  Report Type: 
  Country: US (occurrence: US)
  Receive Date: 20121025
  Receipt Date: 20121025
  Transmission Date: 20130627
  Serious: Yes (Hospitalization, Other)
  Sender: FDA-Public Use
  Company Number: US-NOVEN-12US005537

PATIENT
  Age: 42 Year
  Sex: Male

DRUGS (12)
  1. LITHIUM CARBONATE [Suspect]
     Indication: COGNITIVE DISORDER
     Dosage: 600 mg, bid
     Route: 065
     Dates: start: 1995, end: 2007
  2. LITHIUM CARBONATE [Suspect]
     Indication: AFFECT LABILITY
  3. PREVACID [Concomitant]
     Dosage: 30 mg, qd
     Route: 065
  4. PERCOCET                           /00446701/ [Concomitant]
     Dosage: UNK
     Route: 065
  5. METHIMAZOLE [Concomitant]
     Dosage: 12.5 mg, qd
     Route: 065
  6. SEROQUEL [Concomitant]
     Dosage: 25 mg, morning
     Route: 065
  7. SEROQUEL [Concomitant]
     Dosage: 50 mg, bedtime
  8. LORAZEPAM [Concomitant]
     Dosage: 1 mg, bid
     Route: 065
  9. DILANTIN                           /00017401/ [Concomitant]
     Dosage: 200 mg, bid
     Route: 065
  10. MIRAPEX [Concomitant]
     Dosage: 0.125 mg, tid
     Route: 065
  11. ZOLOFT [Concomitant]
     Dosage: 100 mg, bid
     Route: 065
  12. COLACE [Concomitant]
     Dosage: UNK
     Route: 065

REACTIONS (6)
  - Goitre [Recovered/Resolved]
  - Convulsion [Unknown]
  - Respiratory distress [Recovering/Resolving]
  - Hyperthyroidism [Unknown]
  - Dyspnoea [Unknown]
  - Fatigue [None]
